FAERS Safety Report 6716837-X (Version None)
Quarter: 2010Q2

REPORT INFORMATION
  Report Type: 
  Country: None (occurrence: None)
  Receive Date: 20100510
  Receipt Date: 20100304
  Transmission Date: 20101027
  Serious: Yes (Death, Hospitalization)
  Sender: FDA-Public Use
  Company Number: JP-BAYER-200813231BYL

PATIENT
  Age: 36 Year
  Sex: Male
  Weight: 56 kg

DRUGS (5)
  1. NEXAVAR [Suspect]
     Indication: RENAL CELL CARCINOMA
     Dosage: UNIT DOSE: 200 MG
     Route: 048
     Dates: start: 20080818, end: 20080905
  2. NEXAVAR [Suspect]
     Dosage: UNIT DOSE: 200 MG
     Route: 048
     Dates: start: 20080906, end: 20080913
  3. NEXAVAR [Suspect]
     Dosage: UNIT DOSE: 200 MG
     Route: 048
     Dates: start: 20080914, end: 20080923
  4. NEXAVAR [Suspect]
     Dosage: UNIT DOSE: 200 MG
     Route: 048
     Dates: start: 20080924, end: 20081008
  5. NEXAVAR [Suspect]
     Dosage: UNIT DOSE: 200 MG
     Route: 048
     Dates: start: 20081009, end: 20090210

REACTIONS (7)
  - ANAEMIA [None]
  - HEPATIC FUNCTION ABNORMAL [None]
  - MALIGNANT NEOPLASM PROGRESSION [None]
  - MELAENA [None]
  - METASTASES TO LUNG [None]
  - PALMAR-PLANTAR ERYTHRODYSAESTHESIA SYNDROME [None]
  - RESPIRATORY FAILURE [None]
